FAERS Safety Report 8432338-5 (Version None)
Quarter: 2012Q2

REPORT INFORMATION
  Report Type: 
  Country: None (occurrence: None)
  Receive Date: 20120613
  Receipt Date: 20120608
  Transmission Date: 20120825
  Serious: Yes (Other)
  Sender: FDA-Public Use
  Company Number: PHHY2012JP049903

PATIENT
  Sex: Female
  Weight: 41 kg

DRUGS (7)
  1. CANDESARTAN CILEXETIL AND HYDROCHLOROTHIAZIDE [Concomitant]
     Dosage: 1 DF, UNK
     Route: 048
  2. EXELON [Suspect]
     Dosage: 18 MG, DAILY
     Route: 062
     Dates: start: 20120306, end: 20120403
  3. PRAVASTATIN SODIUM [Concomitant]
     Dosage: 5 MG, DAILY
     Route: 048
  4. TORSEMIDE [Concomitant]
     Dosage: 4 MG, DAILY
     Route: 048
  5. EXELON [Suspect]
     Indication: DEMENTIA ALZHEIMER'S TYPE
     Dosage: 4.5 MG, DAILY
     Route: 062
     Dates: start: 20111216, end: 20120110
  6. EXELON [Suspect]
     Dosage: 9 MG, DAILY
     Route: 062
     Dates: start: 20120110, end: 20120207
  7. EXELON [Suspect]
     Dosage: 13.5 MG, DAILY
     Route: 062
     Dates: start: 20120207, end: 20120306

REACTIONS (2)
  - DELIRIUM [None]
  - ABNORMAL BEHAVIOUR [None]
